FAERS Safety Report 12850014 (Version 1)
Quarter: 2016Q4

REPORT INFORMATION
  Report Type: Spontaneous
  Country: US (occurrence: US)
  Receive Date: 20161014
  Receipt Date: 20161014
  Transmission Date: 20170207
  Serious: Yes (Other)
  Sender: FDA-Public Use
  Company Number: US-ROCHE-1800415

PATIENT
  Age: 73 Year
  Sex: Male

DRUGS (3)
  1. ESBRIET [Suspect]
     Active Substance: PIRFENIDONE
     Dosage: 2 AT BREAKFAST AND 3 CAPSULES AT NIGHT.
     Route: 048
  2. ESBRIET [Suspect]
     Active Substance: PIRFENIDONE
     Indication: IDIOPATHIC PULMONARY FIBROSIS
     Dosage: 3 CAPSULES TID
     Route: 048
     Dates: start: 20160610
  3. ESBRIET [Suspect]
     Active Substance: PIRFENIDONE
     Dosage: 2 AM, 2 PM, 3 HS
     Route: 048
     Dates: start: 20160510

REACTIONS (3)
  - Liver function test increased [Unknown]
  - Diarrhoea [Unknown]
  - Fatigue [Unknown]
